FAERS Safety Report 8532265-9 (Version None)
Quarter: 2012Q3

REPORT INFORMATION
  Report Type: 
  Country: None (occurrence: None)
  Receive Date: 20120724
  Receipt Date: 20120711
  Transmission Date: 20120928
  Serious: Yes (Other)
  Sender: FDA-Public Use
  Company Number: TR-AMGEN-TURSP2012044248

PATIENT
  Age: 46 Year
  Sex: Female

DRUGS (2)
  1. ENBREL [Suspect]
     Dosage: 50 MG, WEEKLY
     Route: 058
     Dates: start: 20120626
  2. ENBREL [Suspect]
     Indication: RHEUMATOID ARTHRITIS
     Dosage: 50 MG, WEEKLY
     Route: 058
     Dates: start: 20120410

REACTIONS (6)
  - TOOTH INFECTION [None]
  - JOINT SWELLING [None]
  - ARTHRALGIA [None]
  - GAIT DISTURBANCE [None]
  - SLEEP DISORDER [None]
  - ARTHRITIS INFECTIVE [None]
